FAERS Safety Report 11113433 (Version 2)
Quarter: 2015Q2

REPORT INFORMATION
  Report Type: Spontaneous
  Country: US (occurrence: US)
  Receive Date: 20150514
  Receipt Date: 20150529
  Transmission Date: 20150821
  Serious: No
  Sender: FDA-Public Use
  Company Number: US-AMGEN-USASP2015044982

PATIENT
  Age: 62 Year
  Sex: Female
  Weight: 74.83 kg

DRUGS (4)
  1. CRESTOR [Concomitant]
     Active Substance: ROSUVASTATIN CALCIUM
     Dosage: 10 UNK, QD
  2. ENBREL [Suspect]
     Active Substance: ETANERCEPT
     Indication: PSORIASIS
     Dosage: 50 MG, 2 TIMES/WK
     Route: 058
     Dates: start: 200506, end: 201504
  3. COREG [Concomitant]
     Active Substance: CARVEDILOL
     Dosage: 12.5 UNK, QD
  4. CLOBETASOL [Concomitant]
     Active Substance: CLOBETASOL
     Indication: DERMATITIS
     Dosage: 0.05 %, QD

REACTIONS (1)
  - Rash [Recovered/Resolved]

NARRATIVE: CASE EVENT DATE: 201504
